FAERS Safety Report 14338602 (Version 2)
Quarter: 2019Q2

REPORT INFORMATION
  Report Type: Spontaneous
  Country: CA (occurrence: CA)
  Receive Date: 20171229
  Receipt Date: 20190509
  Transmission Date: 20190711
  Serious: Yes (Other)
  Sender: FDA-Public Use
  Company Number: CA-PFIZER INC-2017544605

PATIENT
  Age: 80 Year
  Sex: Female

DRUGS (5)
  1. DILANTIN [Suspect]
     Active Substance: PHENYTOIN
     Indication: SEIZURE
     Dosage: 3 DF, 1X/DAY (AT NIGHT)
     Dates: start: 2017
  2. DILANTIN [Suspect]
     Active Substance: PHENYTOIN
     Dosage: 200 MG, 1X/DAY (AT NIGHT)
  3. DILANTIN [Suspect]
     Active Substance: PHENYTOIN
     Dosage: 215 MG, 1X/DAY (HALF OF THE 30 MG PLUS 200 MG)
  4. DILANTIN [Suspect]
     Active Substance: PHENYTOIN
     Dosage: 230 MG, 1X/DAY
  5. DILANTIN [Suspect]
     Active Substance: PHENYTOIN
     Dosage: 235 MG, 1X/DAY

REACTIONS (8)
  - Eye disorder [Unknown]
  - Dizziness [Unknown]
  - Feeling abnormal [Unknown]
  - Infection [Unknown]
  - Enteritis infectious [Unknown]
  - Memory impairment [Recovered/Resolved]
  - Intentional product use issue [Unknown]
  - Ulcer [Unknown]

NARRATIVE: CASE EVENT DATE: 2017
